FAERS Safety Report 6202899-5 (Version None)
Quarter: 2009Q2

REPORT INFORMATION
  Report Type: 
  Country: None (occurrence: None)
  Receive Date: 20090526
  Receipt Date: 20090511
  Transmission Date: 20091009
  Serious: Yes (Death, Other)
  Sender: FDA-Public Use
  Company Number: DE-GENENTECH-283434

PATIENT

DRUGS (5)
  1. RITUXIMAB [Suspect]
     Indication: B-CELL LYMPHOMA
     Dosage: 375 MG/M2, UNK
     Route: 065
  2. FLUDARABINE PHOSPHATE [Suspect]
     Indication: B-CELL LYMPHOMA
     Dosage: 125 MG/M2, UNK
     Route: 065
  3. BUSULFAN [Suspect]
     Indication: B-CELL LYMPHOMA
     Dosage: 12 MG/KG, UNK
     Route: 065
  4. CYCLOPHOSPHAMIDE [Suspect]
     Indication: B-CELL LYMPHOMA
     Dosage: 120 MG/KG, UNK
     Route: 065
  5. TACROLIMUS [Suspect]
     Indication: PROPHYLAXIS
     Route: 065

REACTIONS (3)
  - DEATH [None]
  - DISEASE PROGRESSION [None]
  - NON-HODGKIN'S LYMPHOMA RECURRENT [None]
